FAERS Safety Report 11160804 (Version 4)
Quarter: 2019Q4

REPORT INFORMATION
  Report Type: Spontaneous
  Country: US (occurrence: US)
  Receive Date: 20150604
  Receipt Date: 20191031
  Transmission Date: 20200122
  Serious: Yes (Disabling, Other)
  Sender: FDA-Public Use
  Company Number: US-SA-2014SA064208

PATIENT
  Age: 74 Year
  Sex: Female

DRUGS (2)
  1. LANTUS SOLOSTAR [Suspect]
     Active Substance: INSULIN GLARGINE
     Dosage: AT LEAST TWICE A DAY, ^SOMETIMES^ ADMINISTERS A DOSE3 TIME PER DAY
     Route: 065
  2. LANTUS SOLOSTAR [Suspect]
     Active Substance: INSULIN GLARGINE
     Indication: TYPE 2 DIABETES MELLITUS
     Dosage: 26 U, QD
     Route: 065
     Dates: start: 2013

REACTIONS (8)
  - Hyperglycaemia [Unknown]
  - Product dose omission [Unknown]
  - Visual impairment [Unknown]
  - Blood glucose increased [Unknown]
  - Hypoacusis [Unknown]
  - Retinal disorder [Unknown]
  - Inappropriate schedule of product administration [Unknown]
  - Disability [Unknown]
